FAERS Safety Report 5868549-2 (Version None)
Quarter: 2008Q3

REPORT INFORMATION
  Report Type: 
  Country: None (occurrence: None)
  Receive Date: 20080902
  Receipt Date: 20080902
  Transmission Date: 20090109
  Serious: No
  Sender: FDA-Public Use
  Company Number: None

PATIENT
  Age: 21 Year
  Sex: Female
  Weight: 54.4316 kg

DRUGS (1)
  1. FLUOXETINE HCL [Suspect]
     Dosage: 1 CAPSULE BY MOUTH EVERY DAY PO
     Route: 048
     Dates: start: 20080706, end: 20080824

REACTIONS (2)
  - PHARMACEUTICAL PRODUCT COMPLAINT [None]
  - TREATMENT FAILURE [None]
